FAERS Safety Report 7783319-6 (Version None)
Quarter: 2011Q3

REPORT INFORMATION
  Report Type: 
  Country: None (occurrence: None)
  Receive Date: 20110928
  Receipt Date: 20110914
  Transmission Date: 20111222
  Serious: Yes (Other)
  Sender: FDA-Public Use
  Company Number: US-JNJFOC-20110906045

PATIENT
  Age: 51 Year
  Sex: Female
  Weight: 90.72 kg

DRUGS (2)
  1. MULTIPLE VITAMIN [Concomitant]
     Indication: VITAMIN SUPPLEMENTATION
     Dosage: ONE PER DAY FOR THREE TO FOUR YEARS
     Route: 048
  2. BENGAY ULTRA STRENGTH TUBE [Suspect]
     Indication: MUSCLE STRAIN
     Dosage: A SMALL AMOUNT 3 TIMES A DAY
     Route: 061
     Dates: start: 20110909, end: 20110901

REACTIONS (3)
  - APPLICATION SITE BURN [None]
  - BLISTER [None]
  - APPLICATION SITE PUSTULES [None]
